FAERS Safety Report 11671137 (Version 1)
Quarter: 2015Q4

REPORT INFORMATION
  Report Type: Spontaneous
  Country: US (occurrence: US)
  Receive Date: 20151027
  Receipt Date: 20151027
  Transmission Date: 20160304
  Serious: No
  Sender: FDA-Public Use
  Company Number: US-ELI_LILLY_AND_COMPANY-US201004004291

PATIENT
  Age: 63 Year
  Sex: Female

DRUGS (3)
  1. FORTEO [Suspect]
     Active Substance: TERIPARATIDE
     Indication: OSTEOPOROSIS
     Dosage: 20 UG, DAILY (1/D)
     Dates: start: 20100331
  2. FORTEO [Suspect]
     Active Substance: TERIPARATIDE
     Dosage: 20 UG, DAILY (1/D)
     Dates: end: 20100510
  3. RESTASIS [Concomitant]
     Active Substance: CYCLOSPORINE
     Indication: DRY EYE
     Dosage: UNK, UNKNOWN

REACTIONS (15)
  - Feeling hot [Unknown]
  - Feeling abnormal [Unknown]
  - Incorrect route of drug administration [Recovered/Resolved]
  - Pain in jaw [Unknown]
  - Fatigue [Unknown]
  - Hypotension [Unknown]
  - Malaise [Recovered/Resolved]
  - Balance disorder [Unknown]
  - Photopsia [Recovered/Resolved]
  - Tremor [Unknown]
  - Heart rate increased [Unknown]
  - Nausea [Unknown]
  - Pain in extremity [Unknown]
  - Pruritus [Unknown]
  - Toothache [Unknown]

NARRATIVE: CASE EVENT DATE: 20100403
